FAERS Safety Report 12479570 (Version 3)
Quarter: 2016Q4

REPORT INFORMATION
  Report Type: Report from Study
  Country: JP (occurrence: JP)
  Receive Date: 20160620
  Receipt Date: 20161028
  Transmission Date: 20170207
  Serious: Yes (Life-Threatening, Hospitalization, Other)
  Sender: FDA-Public Use
  Company Number: JP-009507513-1606JPN008126

PATIENT
  Age: 64 Year
  Sex: Male

DRUGS (11)
  1. KALETRA [Suspect]
     Active Substance: LOPINAVIR\RITONAVIR
     Dosage: 2 TABLETS, BID
     Route: 048
     Dates: start: 20130401
  2. KALETRA [Suspect]
     Active Substance: LOPINAVIR\RITONAVIR
     Indication: HIV INFECTION
     Dosage: 6 DF (TABLET), QD DIVIDED DOSE FREQUENCY UNKNOWN
     Route: 048
     Dates: start: 20040602, end: 20061031
  3. LIVACT [Concomitant]
     Active Substance: AMINO ACIDS
     Indication: LIVER DISORDER
     Dosage: 4.15 G, TID
     Route: 048
  4. KALETRA [Suspect]
     Active Substance: LOPINAVIR\RITONAVIR
     Dosage: 4 TABLETS DAILY, DIVIDED DOSE FREQUENCY UNKNOWN
     Route: 048
     Dates: start: 20061101, end: 20100331
  5. GLYCYRON [Concomitant]
     Active Substance: AMMONIUM GLYCYRRHIZATE\GLYCINE\METHIONINE
     Indication: LIVER DISORDER
     Dosage: 2 DOSAGE FORM, TID
     Route: 048
  6. ISENTRESS [Suspect]
     Active Substance: RALTEGRAVIR POTASSIUM
     Indication: HIV INFECTION
     Dosage: 800 MG, QD, (DIVIDED DOSE FREQUENCY UNKNOWN)
     Route: 048
     Dates: start: 20111227
  7. KALETRA [Suspect]
     Active Substance: LOPINAVIR\RITONAVIR
     Dosage: 4 TABLETS DAILY, DIVIDED DOSE FREQUENCY UNKNOWN
     Route: 048
     Dates: start: 20101101, end: 20130331
  8. URSO [Concomitant]
     Active Substance: URSODIOL
     Indication: LIVER DISORDER
     Dosage: TOTAL DAILY DOSE: 900 MG, TID, FORMULATION: POR
     Route: 048
  9. EQUA [Concomitant]
     Active Substance: VILDAGLIPTIN
     Indication: DIABETES MELLITUS
     Dosage: DAILY DOSE UNKNOWN
     Route: 048
  10. KOGENATE [Concomitant]
     Active Substance: ANTIHEMOPHILIC FACTOR, HUMAN RECOMBINANT
     Indication: FACTOR VIII DEFICIENCY
     Dosage: 3 THOUSAND-MILION UNIT, THREE TIMES A WEEK
     Route: 051
  11. FEBURIC [Concomitant]
     Active Substance: FEBUXOSTAT
     Indication: HYPERURICAEMIA
     Dosage: DAILY DOSAGE UNKNOWN
     Route: 048

REACTIONS (7)
  - Hyperuricaemia [Not Recovered/Not Resolved]
  - Urinary tract obstruction [Recovered/Resolved]
  - Lymphocyte count decreased [Not Recovered/Not Resolved]
  - Bladder cancer [Not Recovered/Not Resolved]
  - Small intestinal haemorrhage [Not Recovered/Not Resolved]
  - Diabetes mellitus [Not Recovered/Not Resolved]
  - Pyelonephritis [Recovered/Resolved]

NARRATIVE: CASE EVENT DATE: 201504
